FAERS Safety Report 6169877-6 (Version None)
Quarter: 2009Q2

REPORT INFORMATION
  Report Type: 
  Country: None (occurrence: None)
  Receive Date: 20090428
  Receipt Date: 20090209
  Transmission Date: 20091009
  Serious: Yes (Other)
  Sender: FDA-Public Use
  Company Number: US-BAYER-200910549BCC

PATIENT
  Age: 31 Year
  Sex: Female

DRUGS (2)
  1. ALEVE (CAPLET) [Suspect]
     Indication: DRUG USE FOR UNKNOWN INDICATION
     Dosage: TOTAL DAILY DOSE: 220 MG  UNIT DOSE: 220 MG
     Route: 048
     Dates: start: 20090209
  2. AMITRIPTLINE HYDROCHLORIDE TAB [Concomitant]
     Dosage: AT NIGHT

REACTIONS (4)
  - GENERALISED ERYTHEMA [None]
  - TENSION [None]
  - THROAT TIGHTNESS [None]
  - URTICARIA [None]
